FAERS Safety Report 13963367 (Version 1)
Quarter: 2017Q3

REPORT INFORMATION
  Report Type: Spontaneous
  Country: US (occurrence: None)
  Receive Date: 20170913
  Receipt Date: 20170913
  Transmission Date: 20171128
  Serious: Yes (Life-Threatening, Hospitalization)
  Sender: FDA-Public Use
  Company Number: None

PATIENT
  Age: 72 Year
  Sex: Male
  Weight: 102 kg

DRUGS (1)
  1. SULFAMETHIZOLE/TRIMETHOPRIM [Suspect]
     Active Substance: SULFAMETHOXAZOLE\TRIMETHOPRIM
     Indication: SKIN LESION
     Dosage: 800/160 MG BID PO
     Route: 048
     Dates: start: 20170523, end: 20170614

REACTIONS (6)
  - Stomatitis [None]
  - Skin lesion [None]
  - Stevens-Johnson syndrome [None]
  - Mouth ulceration [None]
  - Rash [None]
  - Dysphagia [None]

NARRATIVE: CASE EVENT DATE: 20170614
